FAERS Safety Report 23835605 (Version 1)
Quarter: 2024Q2

REPORT INFORMATION
  Report Type: Spontaneous
  Country: BE (occurrence: BE)
  Receive Date: 20240509
  Receipt Date: 20240509
  Transmission Date: 20240716
  Serious: Yes (Life-Threatening, Hospitalization)
  Sender: FDA-Public Use
  Company Number: BE-Oracle-2013SP004274

PATIENT
  Sex: Male
  Weight: 81 kg

DRUGS (13)
  1. VANCOMYCIN [Suspect]
     Active Substance: VANCOMYCIN
     Indication: Pyrexia
     Dosage: UNK
     Route: 065
     Dates: start: 20121231, end: 20130105
  2. VANCOMYCIN [Suspect]
     Active Substance: VANCOMYCIN
     Indication: Tooth extraction
     Dosage: UNK
     Route: 065
     Dates: start: 201301, end: 201301
  3. MEROPENEM [Suspect]
     Active Substance: MEROPENEM
     Indication: Pyrexia
     Dosage: UNK
     Route: 065
     Dates: start: 20121231, end: 20130105
  4. MEROPENEM [Suspect]
     Active Substance: MEROPENEM
     Indication: Tooth extraction
     Dosage: UNK
     Route: 065
     Dates: start: 201301, end: 201301
  5. AMOXICILLIN\CLAVULANATE POTASSIUM [Suspect]
     Active Substance: AMOXICILLIN\CLAVULANATE POTASSIUM
     Indication: Pyrexia
     Dosage: 1 GRAM, BID
     Route: 065
     Dates: start: 20121231, end: 201301
  6. AMOXICILLIN\CLAVULANATE POTASSIUM [Suspect]
     Active Substance: AMOXICILLIN\CLAVULANATE POTASSIUM
     Indication: Tooth extraction
  7. AMIKACIN SULFATE [Suspect]
     Active Substance: AMIKACIN SULFATE
     Indication: Pyrexia
     Dosage: UNK
     Route: 065
     Dates: start: 20121231, end: 20130105
  8. AMIKACIN SULFATE [Suspect]
     Active Substance: AMIKACIN SULFATE
     Indication: Tooth extraction
     Dosage: UNK
     Route: 065
     Dates: start: 201301, end: 201301
  9. BISOPROLOL FUMARATE [Concomitant]
     Active Substance: BISOPROLOL FUMARATE
     Dosage: 5 MILLIGRAM, QD
     Route: 048
  10. ZANTAC [Concomitant]
     Active Substance: RANITIDINE HYDROCHLORIDE
     Dosage: 150 MILLIGRAM, QD
     Route: 048
  11. ZOCOR [Concomitant]
     Active Substance: SIMVASTATIN
     Dosage: 40 MILLIGRAM, QD
     Route: 048
  12. NOVORAPID [Concomitant]
     Active Substance: INSULIN ASPART
     Dosage: 16 INTERNATIONAL UNIT, QD (PER DAY)
     Route: 058
  13. LANTUS [Concomitant]
     Active Substance: INSULIN GLARGINE
     Dosage: 12 INTERNATIONAL UNIT, QD (PER DAY)
     Route: 058

REACTIONS (5)
  - Viral infection [Recovered/Resolved]
  - C-reactive protein increased [Recovered/Resolved]
  - Thrombocytopenia [Recovered/Resolved]
  - Chills [Recovered/Resolved]
  - Pyrexia [Recovered/Resolved]

NARRATIVE: CASE EVENT DATE: 20121231
